FAERS Safety Report 7294672-4 (Version None)
Quarter: 2011Q1

REPORT INFORMATION
  Report Type: 
  Country: None (occurrence: None)
  Receive Date: 20110203
  Receipt Date: 20110124
  Transmission Date: 20110831
  Serious: Yes (Other)
  Sender: FDA-Public Use
  Company Number: AVE_01683_2010

PATIENT
  Sex: Female
  Weight: 44.4525 kg

DRUGS (3)
  1. CLONIDINE [Suspect]
  2. CLONIDINE [Suspect]
     Indication: HYPERTENSION
     Dosage: SEE IMAGE
     Route: 062
     Dates: start: 20091101
  3. CLONIDINE [Suspect]
     Indication: HYPERTENSION
     Dosage: SEE IMAGE
     Route: 062
     Dates: start: 20110102

REACTIONS (5)
  - COUGH [None]
  - PRODUCT QUALITY ISSUE [None]
  - PRODUCT ADHESION ISSUE [None]
  - DYSPHAGIA [None]
  - BLOOD PRESSURE INCREASED [None]
